FAERS Safety Report 7257030-4 (Version None)
Quarter: 2011Q1

REPORT INFORMATION
  Report Type: 
  Country: None (occurrence: None)
  Receive Date: 20110129
  Receipt Date: 20100622
  Transmission Date: 20110831
  Serious: No
  Sender: FDA-Public Use
  Company Number: US-ABBOTT-10P-163-0653775-00

PATIENT
  Sex: Female
  Weight: 77.18 kg

DRUGS (2)
  1. EXEDRIN MIGRAINE [Concomitant]
     Indication: MIGRAINE
  2. HUMIRA [Suspect]
     Indication: PSORIATIC ARTHROPATHY
     Dates: end: 20100301

REACTIONS (2)
  - PSORIASIS [None]
  - DRUG DOSE OMISSION [None]
